FAERS Safety Report 9384552 (Version 1)
Quarter: 2013Q2

REPORT INFORMATION
  Report Type: Spontaneous
  Country: IT (occurrence: None)
  Receive Date: 20130628
  Receipt Date: 20130628
  Transmission Date: 20140414
  Serious: Yes (Other)
  Sender: FDA-Public Use
  Company Number: SYM-2013-05118

PATIENT
  Sex: 0

DRUGS (5)
  1. FLUOROURACIL [Suspect]
     Indication: RECTAL ADENOCARCINOMA
     Route: 042
  2. OXALIPLATIN [Suspect]
     Indication: RECTAL ADENOCARCINOMA
     Route: 042
  3. THERPEUTIC RADIOPHARMACEUTICALS [Concomitant]
  4. DEXAMETHASONE [Concomitant]
  5. ONDANSETRON [Concomitant]

REACTIONS (1)
  - Deep vein thrombosis [None]
